FAERS Safety Report 8588041-4 (Version None)
Quarter: 2012Q3

REPORT INFORMATION
  Report Type: 
  Country: None (occurrence: None)
  Receive Date: 20120731
  Receipt Date: 20120720
  Transmission Date: 20120928
  Serious: Yes (Other)
  Sender: FDA-Public Use
  Company Number: ADE12-073

PATIENT
  Age: 58 Year
  Sex: Female
  Weight: 101 kg

DRUGS (6)
  1. ROCURONIUM BROMIDE INJECTION, SAGENT, 50 MG/5 ML [Suspect]
     Indication: ANAESTHESIA
     Dosage: 50 MG, ONCE, IV
     Route: 042
     Dates: start: 20120719
  2. ZYRTEC-D 12 HOUR [Concomitant]
  3. OXYBUTYNIN CHLORIDE [Concomitant]
  4. SENOKOT [Concomitant]
  5. QUINAPRIL [Concomitant]
  6. PERCOCET [Concomitant]

REACTIONS (1)
  - DRUG EFFECT DECREASED [None]
